FAERS Safety Report 5773867-2 (Version None)
Quarter: 2008Q2

REPORT INFORMATION
  Report Type: 
  Country: None (occurrence: None)
  Receive Date: 20080616
  Receipt Date: 20080613
  Transmission Date: 20081010
  Serious: Yes (Other)
  Sender: FDA-Public Use
  Company Number: A0710023A

PATIENT
  Age: 56 Year
  Sex: Female
  Weight: 68 kg

DRUGS (3)
  1. SERETIDE [Suspect]
     Indication: ASTHMA
     Route: 055
     Dates: start: 20080109
  2. YELLOW FEVER VACCINE [Concomitant]
     Dates: start: 20080101
  3. CLORANA [Concomitant]
     Dosage: .5TAB PER DAY
     Route: 048
     Dates: start: 20080201

REACTIONS (11)
  - CANDIDIASIS [None]
  - COUGH [None]
  - DIZZINESS [None]
  - DYSPHONIA [None]
  - HAEMATOMA [None]
  - HEADACHE [None]
  - HYPERHIDROSIS [None]
  - MACROGLOSSIA [None]
  - OEDEMA [None]
  - VISION BLURRED [None]
  - WEIGHT INCREASED [None]
